FAERS Safety Report 4580346-7 (Version None)
Quarter: 2005Q1

REPORT INFORMATION
  Report Type: 
  Country: None (occurrence: None)
  Receive Date: 20050214
  Receipt Date: 20040102
  Transmission Date: 20050727
  Serious: No
  Sender: FDA-Public Use
  Company Number: US-GLAXOSMITHKLINE-A0490966A

PATIENT
  Age: 17 Year
  Sex: Male

DRUGS (5)
  1. LAMICTAL [Suspect]
     Indication: BIPOLAR DISORDER
     Dosage: 50MG PER DAY
     Route: 048
  2. GEODON [Concomitant]
  3. ZYPREXA [Concomitant]
  4. KLONOPIN [Concomitant]
  5. XANAX [Concomitant]

REACTIONS (1)
  - RASH [None]
